FAERS Safety Report 10201394 (Version 1)
Quarter: 2014Q2

REPORT INFORMATION
  Report Type: Spontaneous
  Country: IT (occurrence: IT)
  Receive Date: 20140528
  Receipt Date: 20140528
  Transmission Date: 20141212
  Serious: Yes (Hospitalization)
  Sender: FDA-Public Use
  Company Number: IT-BAYER-2014-074903

PATIENT
  Age: 82 Year
  Sex: Female

DRUGS (9)
  1. GLUCOBAY [Suspect]
     Indication: DIABETES MELLITUS
     Dosage: DAILY DOSE 150 MG
     Route: 048
     Dates: start: 20130122
  2. GLICOREST [Suspect]
     Indication: DIABETES MELLITUS
     Dosage: DAILY DOSE 1250 MG
     Route: 048
     Dates: start: 20130122
  3. LANTUS [Suspect]
     Indication: DIABETES MELLITUS
     Dosage: DAILY DOSE 15 IU
     Route: 058
     Dates: start: 20130122
  4. ATENOLOL [Concomitant]
     Dosage: UNK
     Route: 048
  5. CARDIOASPIRIN [Concomitant]
     Dosage: DAILY DOSE 100 MG
     Route: 048
  6. BLOPRESS [Concomitant]
     Dosage: UNK
     Route: 048
  7. LASIX [Concomitant]
     Dosage: UNK
     Route: 048
  8. TOTALIP [Concomitant]
     Dosage: UNK
     Route: 048
  9. MONOCINQUE [Concomitant]

REACTIONS (3)
  - Hypoglycaemia [Recovered/Resolved]
  - Diplopia [Recovered/Resolved]
  - Aphasia [Recovered/Resolved]
